FAERS Safety Report 5817327-9 (Version None)
Quarter: 2008Q3

REPORT INFORMATION
  Report Type: 
  Country: None (occurrence: None)
  Receive Date: 20080715
  Receipt Date: 20080701
  Transmission Date: 20090109
  Serious: Yes (Life-Threatening, Other)
  Sender: FDA-Public Use
  Company Number: US024035

PATIENT
  Age: 42 Year
  Sex: Male
  Weight: 60.7 kg

DRUGS (4)
  1. TRISENOX [Suspect]
     Indication: ACUTE PROMYELOCYTIC LEUKAEMIA
     Dosage: 8.7 MG DAILY; INTRAVENOUS DRIP
     Route: 041
     Dates: start: 20080111, end: 20080119
  2. IDARUBICIN HYDROCHLORIDE [Concomitant]
  3. LANSOPRAZOLE [Concomitant]
  4. ITRACONAZOLE [Concomitant]

REACTIONS (11)
  - ACUTE PROMYELOCYTIC LEUKAEMIA DIFFERENTIATION SYNDROME [None]
  - ALANINE AMINOTRANSFERASE INCREASED [None]
  - BLOOD POTASSIUM DECREASED [None]
  - BLOOD SODIUM DECREASED [None]
  - HEPATIC FUNCTION ABNORMAL [None]
  - HYPERGLYCAEMIA [None]
  - HYPERURICAEMIA [None]
  - HYPOALBUMINAEMIA [None]
  - HYPOPROTEINAEMIA [None]
  - LEUKOCYTOSIS [None]
  - RENAL IMPAIRMENT [None]
